FAERS Safety Report 19024359 (Version 1)
Quarter: 2021Q1

REPORT INFORMATION
  Report Type: Spontaneous
  Country: CA (occurrence: CA)
  Receive Date: 20210317
  Receipt Date: 20210317
  Transmission Date: 20210420
  Serious: Yes (Other)
  Sender: FDA-Public Use
  Company Number: CA-JNJFOC-20210323944

PATIENT
  Age: 60 Year
  Sex: Male

DRUGS (3)
  1. XELJANZ [Concomitant]
     Active Substance: TOFACITINIB CITRATE
  2. INFLIXIMAB, RECOMBINANT [Suspect]
     Active Substance: INFLIXIMAB
     Indication: RHEUMATOID ARTHRITIS
     Route: 042
  3. METHOTREXATE. [Concomitant]
     Active Substance: METHOTREXATE
     Route: 065

REACTIONS (7)
  - Foot fracture [Unknown]
  - Rheumatoid arthritis [Unknown]
  - Intentional product use issue [Unknown]
  - Musculoskeletal stiffness [Unknown]
  - Off label use [Unknown]
  - Feeling abnormal [Unknown]
  - Malaise [Unknown]
